FAERS Safety Report 9850208 (Version 1)
Quarter: 2013Q4

REPORT INFORMATION
  Report Type: Spontaneous
  Country: US (occurrence: None)
  Receive Date: 20131226
  Receipt Date: 20131226
  Transmission Date: 20140711
  Serious: Yes (Other)
  Sender: FDA-Public Use
  Company Number: PHEH2013US007569

PATIENT
  Age: 80 Year
  Sex: 0

DRUGS (2)
  1. LESCOL XL [Suspect]
     Dosage: 1 DF , QD
  2. FOLIC ACID (FOLIC ACID) [Concomitant]

REACTIONS (1)
  - Rash [None]
